FAERS Safety Report 5398863-9 (Version None)
Quarter: 2007Q3

REPORT INFORMATION
  Report Type: 
  Country: None (occurrence: None)
  Receive Date: 20070727
  Receipt Date: 20070720
  Transmission Date: 20080115
  Serious: Yes (Hospitalization)
  Sender: FDA-Public Use
  Company Number: PHBS2006JP19822

PATIENT
  Age: 44 Year
  Sex: Male

DRUGS (4)
  1. BENZODIAZEPINES [Concomitant]
     Route: 048
  2. LUDIOMIL [Suspect]
     Indication: INCORRECT DOSE ADMINISTERED
     Dosage: 30 DF OF 25 MG, ONCE/SINGLE
     Route: 048
     Dates: start: 20061201
  3. TEGRETOL [Suspect]
     Indication: INCORRECT DOSE ADMINISTERED
     Dosage: 6 DF, ONCE/SINGLE
     Route: 048
     Dates: start: 20061201
  4. LEXOTAN [Suspect]
     Indication: INCORRECT DOSE ADMINISTERED
     Dosage: 48 DF OF 2 MG, ONCE/SINGLE
     Route: 048
     Dates: start: 20061201

REACTIONS (3)
  - COMA [None]
  - INTENTIONAL OVERDOSE [None]
  - SUICIDE ATTEMPT [None]
